FAERS Safety Report 6303964-4 (Version None)
Quarter: 2009Q3

REPORT INFORMATION
  Report Type: 
  Country: None (occurrence: None)
  Receive Date: 20090805
  Receipt Date: 20090725
  Transmission Date: 20100115
  Serious: Yes (Other)
  Sender: FDA-Public Use
  Company Number: 2009AP002881

PATIENT
  Age: 7 Year
  Sex: Female

DRUGS (1)
  1. APO-LEVETIRACETAM (LEVETIRACETAM) [Suspect]
     Indication: CONVULSION
     Dosage: 375 MG;TAB;PO ; 375 MG;TAB;GT
     Route: 048

REACTIONS (3)
  - CONVULSION [None]
  - DRUG INEFFECTIVE [None]
  - WRONG TECHNIQUE IN DRUG USAGE PROCESS [None]
